FAERS Safety Report 7966331-3 (Version None)
Quarter: 2011Q4

REPORT INFORMATION
  Report Type: 
  Country: None (occurrence: None)
  Receive Date: 20111208
  Receipt Date: 20111128
  Transmission Date: 20120403
  Serious: Yes (Hospitalization, Other)
  Sender: FDA-Public Use
  Company Number: FR-PFIZER INC-2011143901

PATIENT
  Age: 80 Year
  Sex: Male

DRUGS (4)
  1. CORDARONE [Suspect]
     Indication: PRODUCT USED FOR UNKNOWN INDICATION
     Dosage: 200 MG, UNK
     Route: 048
     Dates: start: 20060101, end: 20110401
  2. LERCANIDIPINE [Concomitant]
     Dosage: UNK
  3. CANDESARTAN CILEXETIL AND HYDROCHLOROTHIAZIDE [Concomitant]
     Dosage: UNK
  4. ZOCOR [Concomitant]
     Dosage: UNK

REACTIONS (3)
  - ASTHENIA [None]
  - HYPERTHYROIDISM [None]
  - GENERAL PHYSICAL HEALTH DETERIORATION [None]
